FAERS Safety Report 9695896 (Version 1)
Quarter: 2013Q4

REPORT INFORMATION
  Report Type: Spontaneous
  Country: US (occurrence: None)
  Receive Date: 20131118
  Receipt Date: 20131118
  Transmission Date: 20140711
  Serious: Yes (Other)
  Sender: FDA-Public Use
  Company Number: None

PATIENT
  Age: 46 Year
  Sex: Female
  Weight: 49.9 kg

DRUGS (1)
  1. BUPROPRION 200MG SANDOZ [Suspect]
     Indication: DEPRESSION
     Dosage: 2 PILLS  ONCE DAILY  TAKEN BY MOUTH
     Route: 048
     Dates: start: 20130901, end: 20131101

REACTIONS (7)
  - Alopecia [None]
  - Alopecia [None]
  - Hair texture abnormal [None]
  - Product quality issue [None]
  - Product substitution issue [None]
  - Product formulation issue [None]
  - Increased appetite [None]
